FAERS Safety Report 8967869 (Version 1)
Quarter: 2012Q4

REPORT INFORMATION
  Report Type: 
  Country: US (occurrence: US)
  Receive Date: 20121217
  Receipt Date: 20121217
  Transmission Date: 20130627
  Serious: Yes (Hospitalization)
  Sender: FDA-Public Use
  Company Number: US-ASTRAZENECA-2012SE92250

PATIENT
  Age: 70 Year
  Sex: Female

DRUGS (1)
  1. CRESTOR [Suspect]
     Route: 048

REACTIONS (5)
  - Muscle spasms [Unknown]
  - Malaise [Unknown]
  - Gastrointestinal disorder [Unknown]
  - Diverticulitis [Unknown]
  - Post procedural infection [Unknown]
